FAERS Safety Report 6031666-0 (Version None)
Quarter: 2009Q1

REPORT INFORMATION
  Report Type: 
  Country: None (occurrence: None)
  Receive Date: 20090107
  Receipt Date: 20090107
  Transmission Date: 20090719
  Serious: Yes (Hospitalization, Disabling)
  Sender: FDA-Public Use
  Company Number: None

PATIENT
  Age: 73 Year
  Sex: Male
  Weight: 78.9259 kg

DRUGS (10)
  1. PEG 3350/ELECTROLYTES SOL (KREM-0446) [Suspect]
     Indication: COLONOSCOPY
     Dosage: 1 GALLON ONE TIME SWALLOW
     Route: 048
     Dates: start: 20070312
  2. SULINDAC [Suspect]
     Indication: ARTHRITIS
     Dosage: 150 MG ONCE DAILY SWALLOW
     Route: 048
  3. FOSAMAX PLUS D [Concomitant]
  4. AMLODIPINE BESYLATE [Concomitant]
  5. FUROSEMIDE [Concomitant]
  6. FERROUS SULFATE TAB [Concomitant]
  7. SIMVASTATIN [Concomitant]
  8. CHILDREN'S ASPIRIN [Concomitant]
  9. FLOMAX [Concomitant]
  10. MEDTRONIC PARADIGM INSULIN PUMP [Concomitant]

REACTIONS (2)
  - RENAL FAILURE ACUTE [None]
  - VOMITING [None]
